FAERS Safety Report 6253408 (Version 2)
Quarter: 2019Q2

REPORT INFORMATION
  Report Type: Spontaneous
  Country: FR (occurrence: FR)
  Receive Date: 20070305
  Receipt Date: 20190410
  Transmission Date: 20190711
  Serious: Yes (Hospitalization)
  Sender: FDA-Public Use
  Company Number: FR-SHR-FR-2007-006550

PATIENT
  Age: 70 Year
  Sex: Male
  Weight: 80 kg

DRUGS (1)
  1. ALEMTUZUMAB [Suspect]
     Active Substance: ALEMTUZUMAB
     Indication: CHRONIC LYMPHOCYTIC LEUKAEMIA
     Dosage: UNK UNK,UNK
     Route: 041
     Dates: start: 20060725, end: 20060804

REACTIONS (6)
  - Muscle spasms [Recovered/Resolved]
  - Tremor [Recovered/Resolved]
  - Injection site mass [Recovered/Resolved]
  - Oedema [Recovered/Resolved]
  - Injection site reaction [Recovered/Resolved]
  - Chills [Recovered/Resolved]

NARRATIVE: CASE EVENT DATE: 20060727
